FAERS Safety Report 18050898 (Version 1)
Quarter: 2020Q3

REPORT INFORMATION
  Report Type: Spontaneous
  Country: BR (occurrence: BR)
  Receive Date: 20200721
  Receipt Date: 20200721
  Transmission Date: 20201103
  Serious: Yes (Other)
  Sender: FDA-Public Use
  Company Number: NVSC2020BR203444

PATIENT
  Sex: Male
  Weight: 67 kg

DRUGS (10)
  1. ATENOLOL. [Suspect]
     Active Substance: ATENOLOL
     Indication: CARDIAC DISORDER
     Dosage: 100 MG, QD, 5 YEARS(WAS UNABLE TO INFORM FOR SURE)
     Route: 048
  2. MAREVAN [Concomitant]
     Active Substance: WARFARIN SODIUM
     Dosage: 2.5 MG, QD, 5 DAYS A WEEK, 12 YEARS AGO
     Route: 048
  3. TAMSULON [Concomitant]
     Indication: URINARY TRACT DISORDER
     Dosage: FOR OVER 5 YEARS, 0.4 MG, QD
     Route: 048
  4. ATORVASTATIN [Concomitant]
     Active Substance: ATORVASTATIN
     Indication: CARDIAC DISORDER
     Dosage: 20 YEARS AGO, 20 MG, QD
     Route: 048
  5. CLOPIDOGREL [Concomitant]
     Active Substance: CLOPIDOGREL BISULFATE
     Indication: CARDIAC DISORDER
     Dosage: 15 YEARS AGO, 0.4 MG, QD
     Route: 048
  6. TRAVATAN Z [Concomitant]
     Active Substance: TRAVOPROST
     Indication: GLAUCOMA
     Dosage: 10 YEARS AGO, 1 DROP IN EACH EYE, QD
     Route: 031
  7. SIMBRINZA [Concomitant]
     Active Substance: BRIMONIDINE TARTRATE\BRINZOLAMIDE
     Indication: GLAUCOMA
     Dosage: 2 YEARS AGO, 1 DROP IN EACH EYE, BID
     Route: 031
  8. HYABAK [Concomitant]
     Active Substance: HYALURONATE SODIUM
     Indication: EYE LUBRICATION THERAPY
     Dosage: STARTED 3 OR 4 YEARS AGO, ONE DROP IN EACH EYE, 4 OR 5 TIMES A DAY
     Route: 031
  9. MAREVAN [Concomitant]
     Active Substance: WARFARIN SODIUM
     Indication: CARDIAC DISORDER
     Dosage: 5 MG, QD, 12 YEARS AGO,TUESDAYS AND THURSDAYS
     Route: 048
  10. AMIODARONE [Concomitant]
     Active Substance: AMIODARONE
     Indication: ARRHYTHMIA
     Dosage: 20 YEARS AGO, 200 MG, QD
     Route: 048

REACTIONS (1)
  - Myocardial infarction [Recovered/Resolved]
